FAERS Safety Report 18599396 (Version 1)
Quarter: 2020Q4

REPORT INFORMATION
  Report Type: Spontaneous
  Country: RO (occurrence: RO)
  Receive Date: 20201210
  Receipt Date: 20201210
  Transmission Date: 20210114
  Serious: Yes (Death, Life-Threatening, Hospitalization, Other)
  Sender: FDA-Public Use
  Company Number: RO-ACCORD-209402

PATIENT
  Age: 46 Year
  Sex: Male

DRUGS (16)
  1. ALLOPURINOL. [Suspect]
     Active Substance: ALLOPURINOL
     Indication: BLOOD URIC ACID ABNORMAL
     Dosage: 100 MILLIGRAM, BID
  2. HYDREA [Suspect]
     Active Substance: HYDROXYUREA
     Indication: CHRONIC MYELOID LEUKAEMIA
     Dosage: 1000 MG TWICE DAILY
  3. METHOTREXATE. [Suspect]
     Active Substance: METHOTREXATE
     Indication: CHRONIC MYELOID LEUKAEMIA
     Dosage: PROPHYLACTIC INTRATHECAL ADMINISTRATION OF CHEMOTHERAPY (METHOTREXATE 15 MG) WAS DONE...
     Route: 037
  4. DEXAMETHASONE. [Suspect]
     Active Substance: DEXAMETHASONE
     Indication: CHRONIC MYELOID LEUKAEMIA
     Dosage: WAS DONE ON DAY 15 OF1ST CYCLE OF TREATMENT AND ON DAY 1 OF  2NDE CYCLE
     Route: 037
  5. METHOTREXATE. [Suspect]
     Active Substance: METHOTREXATE
     Indication: CHRONIC MYELOID LEUKAEMIA
     Dosage: THE SECOND CYCLE OF TREATMENT 1,900 MG ON DAY 1
     Route: 065
  6. METHOTREXATE. [Suspect]
     Active Substance: METHOTREXATE
     Indication: CHRONIC MYELOID LEUKAEMIA
     Dosage: AND THEN ON DAY 8, DUE TO THE IMPORTANT THROMBOCYTOPENIA, BUT THE INTRATHECAL?ADMINISTRATION OF ...
     Route: 065
  7. CYTARABINE/CYTARABINE HYDROCHLORIDE/CYTARABINE OCFOSFATE [Suspect]
     Active Substance: CYTARABINE
     Indication: CHRONIC MYELOID LEUKAEMIA
     Dosage: THE SECOND CYCLE- PROPHYLACTIC INTRATHECAL CHEMOTHERAPY ON DAY 1
     Route: 037
  8. DEXAMETHASONE. [Suspect]
     Active Substance: DEXAMETHASONE
     Indication: PROPHYLACTIC CHEMOTHERAPY
     Dosage: PROPHYLACTIC INTRATHECAL ADMINISTRATION OF CHEMOTHERAPY (DEXAMETHASONE 4 MG) WAS DONE ON DAY 15...
     Route: 037
  9. DEXAMETHASONE. [Suspect]
     Active Substance: DEXAMETHASONE
     Indication: CHRONIC MYELOID LEUKAEMIA
     Dosage: 40 MG ON DAY 1-2, 8-9, 15-16 AND 22-23
     Route: 037
  10. FILGRASTIM/GRANULOCYTE COLONY STIMULATING/LENOGRASTIM [Concomitant]
     Active Substance: GRANULOCYTE COLONY-STIMULATING FACTOR NOS
     Indication: APLASIA
  11. CYTARABINE/CYTARABINE HYDROCHLORIDE/CYTARABINE OCFOSFATE [Suspect]
     Active Substance: CYTARABINE
     Indication: CHRONIC MYELOID LEUKAEMIA
     Dosage: THE SECOND CYCLE OF TREATMENT 5,700 MG TWICE DAILY ON DAYS 2 AND 3
     Route: 037
  12. IMATINIB/IMATINIB MESILATE [Suspect]
     Active Substance: IMATINIB
     Indication: CHRONIC MYELOID LEUKAEMIA
     Dosage: THE SECOND CYCLE OF TREATMENT
     Route: 048
  13. FOLINIC ACID [Concomitant]
     Active Substance: LEUCOVORIN
     Route: 065
  14. CYTARABINE/CYTARABINE HYDROCHLORIDE/CYTARABINE OCFOSFATE [Suspect]
     Active Substance: CYTARABINE
     Indication: CHRONIC MYELOID LEUKAEMIA
     Dosage: WAS SKIPPED DUE TO THE PRESENCE OF PERIPHERAL BLASTS ON DAY 1, AND THEN ON DAY 8, DUE TO THE...
     Route: 037
  15. VINCRISTINE [Suspect]
     Active Substance: VINCRISTINE
     Indication: CHRONIC MYELOID LEUKAEMIA
     Dosage: 2MG ON DAYS 1, 8, 15 AND 22 OF THI FIRST CYCLE
     Route: 065
  16. IMATINIB/IMATINIB MESILATE [Suspect]
     Active Substance: IMATINIB
     Indication: CHRONIC MYELOID LEUKAEMIA
     Dosage: IMATINIB 800 MG DAILY FROM DAY 1 TO DAY 28
     Route: 048

REACTIONS (11)
  - Cough [Not Recovered/Not Resolved]
  - Bone marrow failure [Recovered/Resolved]
  - Multiple-drug resistance [Fatal]
  - Condition aggravated [Unknown]
  - Oxygen saturation decreased [Not Recovered/Not Resolved]
  - Pyrexia [Not Recovered/Not Resolved]
  - Thrombocytopenia [Not Recovered/Not Resolved]
  - Acinetobacter sepsis [Fatal]
  - Drug ineffective [Fatal]
  - Blood pressure decreased [Not Recovered/Not Resolved]
  - Acinetobacter infection [Fatal]
